FAERS Safety Report 7597199-5 (Version None)
Quarter: 2011Q3

REPORT INFORMATION
  Report Type: 
  Country: None (occurrence: None)
  Receive Date: 20110708
  Receipt Date: 20100830
  Transmission Date: 20111222
  Serious: No
  Sender: FDA-Public Use
  Company Number: US-GLAXOSMITHKLINE-A0878396A

PATIENT
  Age: 88 Year
  Sex: Female

DRUGS (5)
  1. CARVEDILOL [Concomitant]
  2. DIGOXIN [Concomitant]
  3. LASIX [Concomitant]
  4. FLOVENT [Suspect]
     Indication: PRODUCT USED FOR UNKNOWN INDICATION
     Dosage: 2PUFF TWICE PER DAY
     Route: 055
  5. VITAMIN-MINERAL COMPOUND TAB [Concomitant]

REACTIONS (2)
  - DYSPHONIA [None]
  - PRODUCT QUALITY ISSUE [None]
